FAERS Safety Report 6900405-0 (Version None)
Quarter: 2010Q3

REPORT INFORMATION
  Report Type: 
  Country: None (occurrence: None)
  Receive Date: 20100803
  Receipt Date: 20100730
  Transmission Date: 20110219
  Serious: Yes (Death)
  Sender: FDA-Public Use
  Company Number: PHHY2010US50493

PATIENT
  Sex: Male

DRUGS (1)
  1. EXJADE [Suspect]
     Indication: BLOOD TEST ABNORMAL
     Dosage: 1000 MG TO 1500 MG DAILY
     Route: 048

REACTIONS (1)
  - DEATH [None]
